FAERS Safety Report 16714216 (Version 1)
Quarter: 2019Q3

REPORT INFORMATION
  Report Type: Spontaneous
  Country: US (occurrence: US)
  Receive Date: 20190819
  Receipt Date: 20190819
  Transmission Date: 20191004
  Serious: No
  Sender: FDA-Public Use
  Company Number: US-MALLINCKRODT-T201803532

PATIENT
  Sex: Female

DRUGS (2)
  1. OXYCODONE/ACETAMINOPHEN [Suspect]
     Active Substance: ACETAMINOPHEN\OXYCODONE HYDROCHLORIDE
     Indication: TUMOUR LYSIS SYNDROME
  2. OXYCODONE/ACETAMINOPHEN [Suspect]
     Active Substance: ACETAMINOPHEN\OXYCODONE HYDROCHLORIDE
     Indication: ARTHRITIS
     Dosage: 10/325MG,ONE EVERY SIX HOURS AS NEEDED (PRN)
     Route: 048
     Dates: start: 201709

REACTIONS (4)
  - Tongue discomfort [Unknown]
  - Wrong technique in product usage process [Unknown]
  - Nausea [Unknown]
  - Drug ineffective [Unknown]
